FAERS Safety Report 18062385 (Version 1)
Quarter: 2020Q3

REPORT INFORMATION
  Report Type: Spontaneous
  Country: IT (occurrence: IT)
  Receive Date: 20200724
  Receipt Date: 20200724
  Transmission Date: 20201103
  Serious: Yes (Other)
  Sender: FDA-Public Use
  Company Number: IT-DENTSPLY-2020SCDP000232

PATIENT
  Age: 94 Year
  Sex: Male
  Weight: 100 kg

DRUGS (4)
  1. ROPIVACAINE. [Suspect]
     Active Substance: ROPIVACAINE HYDROCHLORIDE
     Indication: NERVE BLOCK
     Dosage: STRENGTH ? 0.375% 40 ML
     Route: 065
  2. SUFENTANIL [Suspect]
     Active Substance: SUFENTANIL
     Indication: PRODUCT USED FOR UNKNOWN INDICATION
     Dosage: 17.5 MCG IN DIVIDED DOSES
     Route: 065
  3. DEXMEDETOMIDINE. [Suspect]
     Active Substance: DEXMEDETOMIDINE
     Indication: SEDATION
     Dosage: 0.7?0.8 MCG/KG/H
     Route: 042
  4. MEPIVACAINE [Suspect]
     Active Substance: MEPIVACAINE HYDROCHLORIDE
     Indication: LOCAL ANAESTHESIA
     Dosage: STRENGTH: 1% 20 ML
     Route: 065

REACTIONS (3)
  - Hypovolaemia [Recovered/Resolved]
  - Hypotension [Recovered/Resolved]
  - Anaemia [Recovered/Resolved]
